FAERS Safety Report 5514205-X (Version None)
Quarter: 2007Q4

REPORT INFORMATION
  Report Type: 
  Country: None (occurrence: None)
  Receive Date: 20071031
  Receipt Date: 20061018
  Transmission Date: 20080405
  Serious: Yes (Hospitalization)
  Sender: FDA-Public Use
  Company Number: US018543

PATIENT
  Age: 35 Year
  Sex: Female

DRUGS (2)
  1. PROVIGIL [Suspect]
     Dosage: 300 MG QD ORAL
     Route: 048
  2. EFFEXOR [Concomitant]

REACTIONS (1)
  - BLOOD PRESSURE INCREASED [None]
